FAERS Safety Report 4423306-9 (Version None)
Quarter: 2004Q3

REPORT INFORMATION
  Report Type: 
  Country: None (occurrence: None)
  Receive Date: 20040811
  Receipt Date: 20040723
  Transmission Date: 20050211
  Serious: Yes (Hospitalization)
  Sender: FDA-Public Use
  Company Number: JP-GLAXOSMITHKLINE-B0340811A

PATIENT
  Age: 44 Year
  Sex: Female

DRUGS (4)
  1. PAXIL [Suspect]
     Indication: DEPRESSION
     Dosage: 15MG TWICE PER DAY
     Route: 048
     Dates: end: 20040706
  2. EURODIN [Suspect]
     Indication: INSOMNIA
     Dosage: 1MG PER DAY
     Route: 048
     Dates: end: 20040706
  3. SILECE [Suspect]
     Indication: INSOMNIA
     Dosage: 2MG PER DAY
     Route: 048
     Dates: end: 20040706
  4. MYSLEE [Suspect]
     Indication: INSOMNIA
     Dosage: 10MG PER DAY
     Route: 048
     Dates: end: 20040706

REACTIONS (5)
  - DIARRHOEA [None]
  - EATING DISORDER [None]
  - HEPATITIS ACUTE [None]
  - MALAISE [None]
  - NAUSEA [None]
